FAERS Safety Report 10163915 (Version 1)
Quarter: 2014Q2

REPORT INFORMATION
  Report Type: Report from Study
  Country: RS (occurrence: RS)
  Receive Date: 20140510
  Receipt Date: 20140510
  Transmission Date: 20141212
  Serious: Yes (Other)
  Sender: FDA-Public Use
  Company Number: RS-ROCHE-1398185

PATIENT
  Sex: Male
  Weight: 60 kg

DRUGS (1)
  1. CAPECITABINE [Suspect]
     Indication: INTESTINAL ADENOCARCINOMA
     Route: 065
     Dates: start: 20060310, end: 20060530

REACTIONS (1)
  - Disease progression [Unknown]
